FAERS Safety Report 4717073-9 (Version None)
Quarter: 2005Q3

REPORT INFORMATION
  Report Type: 
  Country: None (occurrence: None)
  Receive Date: 20050719
  Receipt Date: 20050708
  Transmission Date: 20060218
  Serious: Yes (Other)
  Sender: FDA-Public Use
  Company Number: PHBS2005BR09901

PATIENT
  Age: 39 Year
  Sex: Female
  Weight: 64 kg

DRUGS (3)
  1. FOLIC ACID [Concomitant]
     Dosage: 1 DF, QD
     Route: 048
  2. HYDREA [Concomitant]
     Indication: ANAEMIA
     Dosage: 1 DF, QD
     Route: 048
  3. DESFERAL [Suspect]
     Indication: SERUM FERRITIN INCREASED
     Dosage: QD FROM MONDAY TO FRIDAY
     Route: 058

REACTIONS (3)
  - EYE DISORDER [None]
  - EYE HAEMORRHAGE [None]
  - VISION BLURRED [None]
